FAERS Safety Report 8250923-0 (Version None)
Quarter: 2012Q1

REPORT INFORMATION
  Report Type: 
  Country: None (occurrence: None)
  Receive Date: 20120328
  Receipt Date: 20120319
  Transmission Date: 20120608
  Serious: Yes (Other)
  Sender: FDA-Public Use
  Company Number: USA/USA/12/0023557

PATIENT
  Age: 50 Year
  Sex: Female
  Weight: 56.6996 kg

DRUGS (1)
  1. FEXOFENADINE HCL [Suspect]
     Indication: PRODUCT USED FOR UNKNOWN INDICATION
     Dosage: 180 MG, 1 IN 1 D, ORAL
     Route: 048
     Dates: start: 20120317

REACTIONS (3)
  - PALPITATIONS [None]
  - ASTHENIA [None]
  - TACHYCARDIA [None]
